FAERS Safety Report 10481550 (Version 10)
Quarter: 2015Q4

REPORT INFORMATION
  Report Type: Report from Study
  Country: US (occurrence: US)
  Receive Date: 20140929
  Receipt Date: 20151124
  Transmission Date: 20160304
  Serious: Yes (Other)
  Sender: FDA-Public Use
  Company Number: US-ALEXION-A201403712

PATIENT
  Sex: Female

DRUGS (1)
  1. SOLIRIS [Suspect]
     Active Substance: ECULIZUMAB
     Indication: HAEMOLYTIC URAEMIC SYNDROME
     Route: 042

REACTIONS (17)
  - Nephrolithiasis [Unknown]
  - Chest pain [Unknown]
  - Nephrolithiasis [Unknown]
  - Influenza like illness [Unknown]
  - Pyrexia [Unknown]
  - Nephrolithiasis [Not Recovered/Not Resolved]
  - Blood potassium increased [Unknown]
  - Pain [Unknown]
  - Nephrolithiasis [Unknown]
  - Drug ineffective [Unknown]
  - Alopecia [Unknown]
  - Abdominal pain [Unknown]
  - Liver disorder [Unknown]
  - Blood creatinine increased [Unknown]
  - Blood iron decreased [Unknown]
  - Abdominal pain [Not Recovered/Not Resolved]
  - Weight decreased [Unknown]

NARRATIVE: CASE EVENT DATE: 2014
